FAERS Safety Report 7605583-6 (Version None)
Quarter: 2011Q3

REPORT INFORMATION
  Report Type: 
  Country: None (occurrence: None)
  Receive Date: 20110713
  Receipt Date: 20110705
  Transmission Date: 20111222
  Serious: Yes (Other)
  Sender: FDA-Public Use
  Company Number: US-US-EMD SERONO, INC.-7069398

PATIENT
  Sex: Female
  Weight: 111 kg

DRUGS (8)
  1. ADVAIR DISKUS 100/50 [Concomitant]
     Indication: ASTHMA
  2. KLONOPIN [Concomitant]
     Indication: MUSCLE SPASMS
  3. ZANAFLEX [Concomitant]
     Indication: MUSCLE SPASMS
  4. DIOVAN [Concomitant]
     Indication: HYPERTENSION
  5. ZYRTEC [Concomitant]
  6. REBIF [Suspect]
     Indication: MULTIPLE SCLEROSIS
     Route: 058
     Dates: start: 20050101, end: 20070101
  7. SYNTHROID [Concomitant]
     Indication: HYPOTHYROIDISM
  8. REBIF [Suspect]
     Route: 058
     Dates: start: 20090101

REACTIONS (4)
  - RAYNAUD'S PHENOMENON [None]
  - HEPATIC ENZYME INCREASED [None]
  - CHILLS [None]
  - PYREXIA [None]
